FAERS Safety Report 5324639-4 (Version None)
Quarter: 2007Q2

REPORT INFORMATION
  Report Type: 
  Country: None (occurrence: None)
  Receive Date: 20070508
  Receipt Date: 20070424
  Transmission Date: 20071010
  Serious: Yes (Disabling)
  Sender: FDA-Public Use
  Company Number: 155662ISR

PATIENT
  Age: 70 Year
  Sex: Male

DRUGS (1)
  1. AMOXICILLIN + CLAVULANATE POTASSIUM [Suspect]
     Indication: URINARY TRACT INFECTION
     Dosage: 3 (1, 3 IN 1D) ORAL
     Route: 048
     Dates: start: 20070305, end: 20070311

REACTIONS (1)
  - JAUNDICE CHOLESTATIC [None]
